FAERS Safety Report 7774620-0 (Version None)
Quarter: 2011Q3

REPORT INFORMATION
  Report Type: 
  Country: None (occurrence: None)
  Receive Date: 20110923
  Receipt Date: 20110915
  Transmission Date: 20111222
  Serious: Yes (Other)
  Sender: FDA-Public Use
  Company Number: US-AMGEN-USASP2011047636

PATIENT
  Age: 63 Year
  Sex: Female

DRUGS (7)
  1. GABAPENTIN [Concomitant]
     Dosage: 1 MG, QD
  2. ADVIL LIQUI-GELS [Concomitant]
     Dosage: 2 MG, QD
  3. ACTONEL [Concomitant]
     Dosage: UNK MG, UNK
  4. LIDOCAINE                          /00033402/ [Concomitant]
     Dosage: UNK
  5. SPIRONOLACTONE [Concomitant]
     Dosage: UNK MG, UNK
  6. ENBREL [Suspect]
     Indication: RHEUMATOID ARTHRITIS
     Dosage: 50 MG, QWK
     Dates: start: 20090101
  7. SYNTHROID [Concomitant]
     Dosage: UNK MUG, UNK

REACTIONS (2)
  - LOSS OF CONSCIOUSNESS [None]
  - COGNITIVE DISORDER [None]
